FAERS Safety Report 20632210 (Version 1)
Quarter: 2022Q1

REPORT INFORMATION
  Report Type: Spontaneous
  Country: DE (occurrence: None)
  Receive Date: 20220324
  Receipt Date: 20220324
  Transmission Date: 20220424
  Serious: Yes (Other)
  Sender: FDA-Public Use
  Company Number: 2022A118856

PATIENT
  Sex: Male

DRUGS (5)
  1. ROSUVASTATIN [Suspect]
     Active Substance: ROSUVASTATIN
     Route: 048
  2. ASA (ACETYLSALICYLICACID) [Concomitant]
     Dosage: 100 MG 1-0-0
  3. RAMIPRIL [Concomitant]
     Active Substance: RAMIPRIL
     Dosage: 2.5 MG 1-0-1
  4. METOPROLOL [Concomitant]
     Active Substance: METOPROLOL
     Dosage: 47.5 MG 1-0-1
  5. METFORMIN [Concomitant]
     Active Substance: METFORMIN HYDROCHLORIDE
     Dosage: 1000 MG 1-0-1

REACTIONS (7)
  - Renal failure [Unknown]
  - Hyperthyroidism [Unknown]
  - Colon cancer [Unknown]
  - Metastatic malignant melanoma [Unknown]
  - Hyperlipidaemia [Unknown]
  - Diabetic nephropathy [Unknown]
  - Blood glucose increased [Unknown]
